FAERS Safety Report 5507924-2 (Version None)
Quarter: 2007Q4

REPORT INFORMATION
  Report Type: 
  Country: None (occurrence: None)
  Receive Date: 20071106
  Receipt Date: 20071024
  Transmission Date: 20080405
  Serious: Yes (Disabling)
  Sender: FDA-Public Use
  Company Number: IE-PFIZER INC-2007074021

PATIENT
  Sex: Female
  Weight: 76 kg

DRUGS (9)
  1. LYRICA [Suspect]
     Indication: MULTIPLE SCLEROSIS
     Route: 048
     Dates: start: 20070808, end: 20070905
  2. LYRICA [Suspect]
     Indication: NEURALGIA
  3. LYRICA [Suspect]
     Indication: FACIAL NEURALGIA
  4. ALL OTHER THERAPEUTIC PRODUCTS [Concomitant]
  5. TEGRETOL [Concomitant]
     Route: 048
  6. BACLOFEN [Concomitant]
     Route: 048
  7. ARICEPT [Concomitant]
     Route: 048
  8. URISPAS [Concomitant]
     Route: 048
  9. QUETIAPINE FUMARATE [Concomitant]
     Route: 048

REACTIONS (4)
  - COORDINATION ABNORMAL [None]
  - DYSSTASIA [None]
  - HYPOKINESIA [None]
  - HYPOTENSION [None]
